FAERS Safety Report 22385949 (Version 2)
Quarter: 2024Q4

REPORT INFORMATION
  Report Type: Spontaneous
  Country: JP (occurrence: JP)
  Receive Date: 20230530
  Receipt Date: 20241206
  Transmission Date: 20250115
  Serious: Yes (Other)
  Sender: ELI LILLY AND COMPANY
  Company Number: JP-ELI_LILLY_AND_COMPANY-JP202305012375

PATIENT
  Age: 69 Year
  Sex: Female

DRUGS (1)
  1. VERZENIO [Suspect]
     Active Substance: ABEMACICLIB
     Indication: Breast cancer
     Dosage: UNK
     Route: 048
     Dates: start: 20220831

REACTIONS (4)
  - Rhabdomyolysis [Recovered/Resolved with Sequelae]
  - Liver function test abnormal [Unknown]
  - Muscular weakness [Not Recovered/Not Resolved]
  - Dysuria [Not Recovered/Not Resolved]
